FAERS Safety Report 14306369 (Version 1)
Quarter: 2017Q4

REPORT INFORMATION
  Report Type: Spontaneous
  Country: US (occurrence: US)
  Receive Date: 20171220
  Receipt Date: 20171220
  Transmission Date: 20180321
  Serious: No
  Sender: FDA-Public Use
  Company Number: US-ALEXION PHARMACEUTICALS INC.-A201714062

PATIENT
  Age: 40 Year
  Sex: Male
  Weight: 99.77 kg

DRUGS (1)
  1. STRENSIQ [Suspect]
     Active Substance: ASFOTASE ALFA
     Indication: HYPOPHOSPHATASIA
     Dosage: UNK, TIW
     Route: 065
     Dates: start: 201709

REACTIONS (2)
  - Blood pressure increased [Unknown]
  - Renal pain [Unknown]
